FAERS Safety Report 18269563 (Version 1)
Quarter: 2020Q3

REPORT INFORMATION
  Report Type: Spontaneous
  Country: CO (occurrence: CO)
  Receive Date: 20200915
  Receipt Date: 20200915
  Transmission Date: 20201103
  Serious: Yes (Hospitalization)
  Sender: FDA-Public Use
  Company Number: CO-PFIZER INC-2020236182

PATIENT
  Age: 52 Year
  Sex: Female

DRUGS (3)
  1. SUTENT [Suspect]
     Active Substance: SUNITINIB MALATE
     Dosage: 37.5 MG, DAILY (3 PILLS OF 12.5 MG)
     Route: 048
     Dates: start: 202005
  2. SUTENT [Suspect]
     Active Substance: SUNITINIB MALATE
     Indication: GASTROINTESTINAL STROMAL TUMOUR
     Dosage: 37.5 MG
     Route: 048
     Dates: start: 201703
  3. SUTENT [Suspect]
     Active Substance: SUNITINIB MALATE
     Dosage: 125 MG
     Route: 048

REACTIONS (4)
  - Venous injury [Not Recovered/Not Resolved]
  - Pain [Unknown]
  - Neoplasm progression [Unknown]
  - Off label use [Unknown]

NARRATIVE: CASE EVENT DATE: 2020
